FAERS Safety Report 8862996 (Version 1)
Quarter: 2012Q4

REPORT INFORMATION
  Report Type: 
  Country: US (occurrence: US)
  Receive Date: 20121026
  Receipt Date: 20121026
  Transmission Date: 20130627
  Serious: No
  Sender: FDA-Public Use
  Company Number: US-ALLERGAN-1203137US

PATIENT
  Age: 93 Year
  Sex: Female

DRUGS (3)
  1. ALPHAGAN P [Suspect]
     Indication: GLAUCOMA
     Dosage: 2 Gtt, bid
     Route: 047
  2. TRAVATAN [Concomitant]
     Indication: DRUG USE FOR UNKNOWN INDICATION
     Dosage: UNK
  3. DORZOLAMIDE [Concomitant]
     Indication: GLAUCOMA
     Dosage: UNK

REACTIONS (4)
  - Blindness transient [Unknown]
  - Head injury [Unknown]
  - Fall [Unknown]
  - Dizziness [Unknown]
